FAERS Safety Report 4906085-8 (Version None)
Quarter: 2006Q1

REPORT INFORMATION
  Report Type: 
  Country: None (occurrence: None)
  Receive Date: 20060209
  Receipt Date: 20060106
  Transmission Date: 20060701
  Serious: Yes (Hospitalization)
  Sender: FDA-Public Use
  Company Number: JP-BOEHRINGER INGELHEIM PHARMACEUTICALS, INC.-2006-BP-00649NB

PATIENT
  Sex: Male

DRUGS (6)
  1. SPIRIVA [Suspect]
     Indication: CHRONIC OBSTRUCTIVE PULMONARY DISEASE
     Route: 048
     Dates: start: 20051013, end: 20051115
  2. ASTOMIN [Concomitant]
     Indication: COUGH
     Route: 048
     Dates: start: 20051004, end: 20051104
  3. MUCODYNE [Concomitant]
     Indication: COUGH
     Route: 048
     Dates: start: 20051004, end: 20051102
  4. SPIROPENT [Concomitant]
     Indication: COUGH
     Route: 048
     Dates: start: 20051006, end: 20051108
  5. CLARITHROMYCIN [Concomitant]
     Indication: PNEUMONIA
     Route: 048
     Dates: start: 20051014, end: 20051021
  6. SEREVENT [Concomitant]
     Indication: DYSPNOEA
     Route: 055
     Dates: start: 20051006

REACTIONS (1)
  - EOSINOPHIL COUNT INCREASED [None]
